FAERS Safety Report 9445933 (Version 6)
Quarter: 2014Q2

REPORT INFORMATION
  Report Type: Report from Study
  Country: JP (occurrence: JP)
  Receive Date: 20130807
  Receipt Date: 20140605
  Transmission Date: 20141212
  Serious: Yes (Hospitalization, Disabling, Other)
  Sender: FDA-Public Use
  Company Number: JP-B.I. PHARMACEUTICALS,INC./RIDGEFIELD-2013-BI-23301NB

PATIENT
  Age: 80 Year
  Sex: Male
  Weight: 74 kg

DRUGS (9)
  1. PRAZAXA [Suspect]
     Indication: CEREBROVASCULAR ACCIDENT PROPHYLAXIS
     Dosage: 220 MG
     Route: 048
     Dates: start: 20120426, end: 20130710
  2. HALFDIGOXIN [Concomitant]
     Indication: ATRIAL FIBRILLATION
     Dosage: 0.125 MG
     Route: 048
     Dates: end: 20130710
  3. LASIX [Concomitant]
     Dosage: 20 MG
     Route: 048
     Dates: end: 20130710
  4. ALDACTONE A [Concomitant]
     Dosage: 25 MG
     Route: 048
     Dates: end: 20130710
  5. VASOLAN [Concomitant]
     Indication: ATRIAL FIBRILLATION
     Dosage: 120 MG
     Route: 048
     Dates: end: 20130710
  6. SELOKEN [Concomitant]
     Indication: ATRIAL FIBRILLATION
     Dosage: 80 MG
     Route: 048
     Dates: end: 20130710
  7. LIVALO [Concomitant]
     Dosage: 2 MG
     Route: 048
     Dates: end: 20130710
  8. JANUVIA [Concomitant]
     Dosage: 50 MG
     Route: 048
     Dates: end: 20130710
  9. ONBREZ [Concomitant]
     Dosage: DOSE: 1 DF
     Route: 055
     Dates: start: 20121121, end: 20130710

REACTIONS (3)
  - Embolic stroke [Recovered/Resolved with Sequelae]
  - Dementia [Unknown]
  - Drug ineffective [Unknown]
